FAERS Safety Report 6724729-5 (Version None)
Quarter: 2010Q2

REPORT INFORMATION
  Report Type: 
  Country: None (occurrence: None)
  Receive Date: 20100513
  Receipt Date: 20090605
  Transmission Date: 20101027
  Serious: Yes (Other)
  Sender: FDA-Public Use
  Company Number: CH-ABBOTT-09P-151-0578300-00

PATIENT
  Age: 29 Year
  Sex: Female

DRUGS (7)
  1. DEPAKINE CHRONO [Suspect]
     Indication: EPILEPSY
     Route: 048
  2. ZONISAMIDE [Suspect]
     Indication: EPILEPSY
     Route: 048
  3. TOPAMAX [Suspect]
     Indication: EPILEPSY
     Route: 048
  4. LAMICTAL [Suspect]
     Indication: EPILEPSY
     Route: 048
  5. RIVOTRIL [Suspect]
     Indication: SLEEP DISORDER
     Route: 048
  6. NIMESULIDE [Suspect]
     Indication: BACK PAIN
     Route: 048
  7. FOLIC ACID [Concomitant]
     Indication: DRUG USE FOR UNKNOWN INDICATION
     Route: 064

REACTIONS (1)
  - ABORTION INDUCED [None]
